FAERS Safety Report 13671155 (Version 1)
Quarter: 2017Q2

REPORT INFORMATION
  Report Type: Spontaneous
  Country: NO (occurrence: NO)
  Receive Date: 20170620
  Receipt Date: 20170620
  Transmission Date: 20170830
  Serious: Yes (Life-Threatening, Hospitalization)
  Sender: FDA-Public Use
  Company Number: NO-ELI_LILLY_AND_COMPANY-NO201706007288

PATIENT
  Age: 38 Year
  Sex: Male

DRUGS (8)
  1. ZYPREXA [Suspect]
     Active Substance: OLANZAPINE
     Dosage: 10 MG, UNKNOWN
     Route: 065
     Dates: start: 20170505, end: 20170508
  2. THIAMINE. [Concomitant]
     Active Substance: THIAMINE
     Indication: PRODUCT USED FOR UNKNOWN INDICATION
     Dosage: 250 MG, SINGLE
     Route: 030
     Dates: start: 20170506, end: 20170510
  3. ZYPREXA [Suspect]
     Active Substance: OLANZAPINE
     Indication: PSYCHOTIC DISORDER
     Dosage: 5 MG, UNKNOWN
     Route: 065
     Dates: start: 20170501
  4. ZYPREXA [Suspect]
     Active Substance: OLANZAPINE
     Dosage: 30 MG, 20 MG + 10 MG
     Route: 065
     Dates: start: 20170515, end: 20170518
  5. ZYPREXA [Suspect]
     Active Substance: OLANZAPINE
     Dosage: 25 MG, 20 MG + 5 MG
     Route: 065
     Dates: start: 20170519, end: 20170521
  6. ZYPREXA [Suspect]
     Active Substance: OLANZAPINE
     Dosage: 20 MG, UNKNOWN
     Route: 065
     Dates: start: 20170522, end: 20170524
  7. TEMESTA                            /00273201/ [Concomitant]
     Active Substance: LORAZEPAM
     Indication: SLEEP DISORDER
     Dosage: 2.5 MG, PRN
     Route: 065
     Dates: start: 20170505
  8. ZYPREXA [Suspect]
     Active Substance: OLANZAPINE
     Dosage: 10 MG, BID
     Route: 065
     Dates: start: 20170509, end: 20170514

REACTIONS (6)
  - Pulmonary embolism [Recovering/Resolving]
  - Sarcoidosis [Unknown]
  - Lymphadenopathy [Unknown]
  - Haemoptysis [Recovering/Resolving]
  - Pulmonary infarction [Unknown]
  - Overdose [Unknown]

NARRATIVE: CASE EVENT DATE: 20170515
